FAERS Safety Report 9521668 (Version 3)
Quarter: 2013Q4

REPORT INFORMATION
  Report Type: Report from Study
  Country: CA (occurrence: CA)
  Receive Date: 20130913
  Receipt Date: 20131106
  Transmission Date: 20140711
  Serious: Yes (Other)
  Sender: FDA-Public Use
  Company Number: PHHY2013CA098093

PATIENT
  Sex: Female

DRUGS (1)
  1. ZOMETA [Suspect]
     Indication: PLASMA CELL MYELOMA
     Dosage: 4 MG, EVERY 3 MONTHS
     Route: 042
     Dates: start: 20121102

REACTIONS (6)
  - Spinal cord neoplasm [Unknown]
  - Plasma cell myeloma [Unknown]
  - Neoplasm recurrence [Unknown]
  - Dehydration [Unknown]
  - Malaise [Unknown]
  - Nausea [Unknown]
